FAERS Safety Report 4326791-6 (Version None)
Quarter: 2004Q1

REPORT INFORMATION
  Report Type: 
  Country: None (occurrence: None)
  Receive Date: 20040330
  Receipt Date: 20040323
  Transmission Date: 20041129
  Serious: Yes (Other)
  Sender: FDA-Public Use
  Company Number: PHBS2004NL03989

PATIENT
  Age: 84 Year
  Sex: Male

DRUGS (1)
  1. NEORAL [Suspect]
     Indication: SKIN DISORDER
     Dosage: 225 MG/D
     Route: 048

REACTIONS (3)
  - DIZZINESS [None]
  - HALLUCINATION [None]
  - VISION BLURRED [None]
